FAERS Safety Report 21943166 (Version 2)
Quarter: 2023Q1

REPORT INFORMATION
  Report Type: Spontaneous
  Country: US (occurrence: US)
  Receive Date: 20230202
  Receipt Date: 20230220
  Transmission Date: 20230418
  Serious: Yes (Life-Threatening, Hospitalization)
  Sender: FDA-Public Use
  Company Number: US-TEVA-2023-US-2850290

PATIENT
  Age: 76 Year
  Sex: Male

DRUGS (10)
  1. CARVEDILOL [Interacting]
     Active Substance: CARVEDILOL
     Indication: Hypertension
     Route: 065
  2. SPIRONOLACTONE [Interacting]
     Active Substance: SPIRONOLACTONE
     Indication: Hypertension
     Route: 065
  3. BACTRIM [Interacting]
     Active Substance: SULFAMETHOXAZOLE\TRIMETHOPRIM
     Indication: Skin ulcer
     Dosage: TWICE DAILY, 7 DAY COURSE
     Route: 065
  4. BACTRIM [Interacting]
     Active Substance: SULFAMETHOXAZOLE\TRIMETHOPRIM
     Dosage: 10 DAY COURSE
     Route: 065
  5. AVAPRO [Interacting]
     Active Substance: IRBESARTAN
     Indication: Hypertension
     Route: 065
  6. TYLENOL [Concomitant]
     Active Substance: ACETAMINOPHEN
     Indication: Skin ulcer
     Route: 065
  7. CODEINE [Concomitant]
     Active Substance: CODEINE
     Indication: Skin ulcer
     Route: 065
  8. METFORMIN [Concomitant]
     Active Substance: METFORMIN HYDROCHLORIDE
     Indication: Diabetes mellitus
     Route: 065
  9. LYRICA [Concomitant]
     Active Substance: PREGABALIN
     Indication: Product used for unknown indication
     Route: 065
  10. MINOXIDIL [Concomitant]
     Active Substance: MINOXIDIL
     Indication: Product used for unknown indication
     Route: 065

REACTIONS (9)
  - Hyperkalaemia [Recovered/Resolved]
  - Acute kidney injury [Recovered/Resolved]
  - Acute coronary syndrome [Recovering/Resolving]
  - Myocardial necrosis [Recovering/Resolving]
  - Myocardial infarction [Recovering/Resolving]
  - Cardiac failure congestive [Recovering/Resolving]
  - Respiratory failure [Recovered/Resolved]
  - Atrial fibrillation [Recovering/Resolving]
  - Drug interaction [Unknown]
